FAERS Safety Report 24449253 (Version 1)
Quarter: 2024Q4

REPORT INFORMATION
  Report Type: Report from Study
  Country: US (occurrence: US)
  Receive Date: 20241017
  Receipt Date: 20241017
  Transmission Date: 20250115
  Serious: Yes (Other)
  Sender: ABBVIE
  Company Number: US-ABBVIE-5961957

PATIENT
  Sex: Male

DRUGS (3)
  1. SKYRIZI [Suspect]
     Active Substance: RISANKIZUMAB-RZAA
     Indication: Psoriasis
     Dosage: WEEK 0?STRENGTH: 150MG/ML
     Route: 058
     Dates: start: 20230921, end: 20230921
  2. SKYRIZI [Suspect]
     Active Substance: RISANKIZUMAB-RZAA
     Dosage: WEEK 4?STRENGTH: 150MG/ML
     Route: 058
     Dates: start: 202310, end: 202310
  3. SKYRIZI [Suspect]
     Active Substance: RISANKIZUMAB-RZAA
     Dosage: STRENGTH: 150MG/ML
     Route: 058
     Dates: start: 202312, end: 202407

REACTIONS (1)
  - Tuberculosis [Unknown]

NARRATIVE: CASE EVENT DATE: 20240101
